FAERS Safety Report 23177047 (Version 1)
Quarter: 2023Q4

REPORT INFORMATION
  Report Type: Spontaneous
  Country: US (occurrence: None)
  Receive Date: 20231112
  Receipt Date: 20231112
  Transmission Date: 20240110
  Serious: Yes (unspecified)
  Sender: FDA-Public Use
  Company Number: None

PATIENT
  Age: 35 Year
  Sex: Female
  Weight: 74.25 kg

DRUGS (5)
  1. .DELTA.8-TETRAHYDROCANNABINOL\HERBALS [Suspect]
     Active Substance: .DELTA.8-TETRAHYDROCANNABINOL\HERBALS
     Indication: Substance use
     Dosage: OTHER QUANTITY : 10 GUMMY;?OTHER FREQUENCY : ONE PIECE;?
     Route: 048
     Dates: start: 20231111, end: 20231111
  2. BUSPAR [Concomitant]
     Active Substance: BUSPIRONE HYDROCHLORIDE
  3. WELLBUTRIN [Concomitant]
     Active Substance: BUPROPION HYDROCHLORIDE
  4. SEROQUEL [Concomitant]
     Active Substance: QUETIAPINE FUMARATE
  5. Daily multi vitamin [Concomitant]

REACTIONS (11)
  - Palpitations [None]
  - Asthenia [None]
  - Dizziness [None]
  - Lethargy [None]
  - Nausea [None]
  - Retching [None]
  - Feeling cold [None]
  - Panic attack [None]
  - Cold sweat [None]
  - Tremor [None]
  - Dry mouth [None]

NARRATIVE: CASE EVENT DATE: 20231111
